FAERS Safety Report 4741692-7 (Version None)
Quarter: 2005Q3

REPORT INFORMATION
  Report Type: 
  Country: None (occurrence: None)
  Receive Date: 20050808
  Receipt Date: 20050609
  Transmission Date: 20060218
  Serious: Yes (Hospitalization)
  Sender: FDA-Public Use
  Company Number: PAR_0153_2005

PATIENT
  Age: 62 Year
  Sex: Male

DRUGS (8)
  1. ISOPTIN [Suspect]
     Indication: ESSENTIAL HYPERTENSION
     Dosage: 240 MG QDAY
  2. METOPROLOL TARTRATE [Suspect]
     Dosage: 2 MG BID IV
     Route: 042
  3. QUINAPRIL HCL [Suspect]
     Dosage: 20 MG QDAY
  4. ERYTHROMYCIN [Concomitant]
  5. ATORVASTATIN [Concomitant]
  6. ASPIRIN [Concomitant]
  7. PANTOPRAZOLE SODIUM [Concomitant]
  8. MORPHINE SULFATE [Concomitant]

REACTIONS (5)
  - ANURIA [None]
  - ATRIOVENTRICULAR BLOCK [None]
  - BRADYCARDIA [None]
  - HAEMODIALYSIS [None]
  - HYPOTENSION [None]
